FAERS Safety Report 22532367 (Version 1)
Quarter: 2023Q2

REPORT INFORMATION
  Report Type: Spontaneous
  Country: US (occurrence: US)
  Receive Date: 20230607
  Receipt Date: 20230607
  Transmission Date: 20230721
  Serious: Yes (Hospitalization, Other)
  Sender: FDA-Public Use
  Company Number: US-SA-SAC20230605000119

PATIENT

DRUGS (1)
  1. LARONIDASE [Suspect]
     Active Substance: LARONIDASE
     Indication: Mucopolysaccharidosis I
     Dosage: 17.4 (UNIT NOT PROVIDED),, QW
     Route: 042
     Dates: start: 20110118

REACTIONS (6)
  - Respiratory arrest [Unknown]
  - Mouth ulceration [Unknown]
  - Oral pain [Unknown]
  - Ear infection [Unknown]
  - Heart rate increased [Unknown]
  - Oxygen saturation decreased [Unknown]
